FAERS Safety Report 24070255 (Version 1)
Quarter: 2024Q3

REPORT INFORMATION
  Report Type: Spontaneous
  Country: US (occurrence: None)
  Receive Date: 20240709
  Receipt Date: 20240709
  Transmission Date: 20241017
  Serious: Yes (Hospitalization)
  Sender: Public
  Company Number: None

PATIENT
  Age: 68 Year
  Sex: Female
  Weight: 56.25 kg

DRUGS (1)
  1. BRUKINSA [Suspect]
     Active Substance: ZANUBRUTINIB
     Indication: Lymphoma
     Dosage: FREQUENCY : DAILY;?
     Route: 048
     Dates: start: 20231107, end: 20240506

REACTIONS (2)
  - Sepsis [None]
  - Ascites [None]

NARRATIVE: CASE EVENT DATE: 20240308
